FAERS Safety Report 7249570-9 (Version None)
Quarter: 2011Q1

REPORT INFORMATION
  Report Type: 
  Country: None (occurrence: None)
  Receive Date: 20110128
  Receipt Date: 20101228
  Transmission Date: 20110831
  Serious: Yes (Hospitalization)
  Sender: FDA-Public Use
  Company Number: FR-BAYER-2010-008701

PATIENT
  Age: 30 Year
  Sex: Female

DRUGS (10)
  1. FOSFOMYCIN [Suspect]
     Dosage: UNK
     Dates: start: 20100925, end: 20100927
  2. GENTAMICIN [Suspect]
     Indication: MENINGITIS ENTEROCOCCAL
     Dosage: UNK
     Route: 041
     Dates: start: 20100903, end: 20100907
  3. VISIPAQUE [Suspect]
     Indication: DIAGNOSTIC PROCEDURE
     Dosage: 1 DF, ONCE
     Route: 042
     Dates: start: 20100921, end: 20100921
  4. VANCOMYCIN [Suspect]
     Indication: MENINGITIS ENTEROCOCCAL
     Dosage: UNK
     Route: 041
     Dates: start: 20100903, end: 20100927
  5. GENTAMICIN [Suspect]
     Dosage: UNK
     Dates: start: 20100923, end: 20100925
  6. AZACTAM [Suspect]
     Indication: MENINGITIS ENTEROCOCCAL
     Dosage: UNK
     Route: 051
     Dates: start: 20100917, end: 20100923
  7. BACTRIM [Suspect]
     Indication: MENINGITIS ENTEROCOCCAL
     Dosage: UNK
     Dates: start: 20100917, end: 20100923
  8. CLAFORAN [Suspect]
     Indication: MENINGITIS ENTEROCOCCAL
     Dosage: UNK
     Route: 041
     Dates: start: 20100901, end: 20100903
  9. CIFLOX [Suspect]
     Indication: MENINGITIS ENTEROCOCCAL
     Dosage: UNK
     Dates: start: 20100923, end: 20100925
  10. FOSFOMYCIN [Suspect]
     Indication: MENINGITIS ENTEROCOCCAL
     Dosage: UNK
     Route: 048
     Dates: start: 20100901, end: 20100903

REACTIONS (1)
  - DRUG RASH WITH EOSINOPHILIA AND SYSTEMIC SYMPTOMS [None]
